FAERS Safety Report 4360051-2 (Version None)
Quarter: 2004Q2

REPORT INFORMATION
  Report Type: 
  Country: None (occurrence: None)
  Receive Date: 20040513
  Receipt Date: 20040510
  Transmission Date: 20050107
  Serious: Yes (Death)
  Sender: FDA-Public Use
  Company Number: 04-00195

PATIENT
  Age: 54 Year
  Sex: Male
  Weight: 68.0396 kg

DRUGS (2)
  1. KADIAN [Suspect]
     Indication: PAIN
     Dosage: 100MG, 2 TWICE DAILY, ORAL
     Route: 048
     Dates: start: 20040412
  2. MORPHINE SULFATE ORAL SOLUTION [Concomitant]

REACTIONS (2)
  - DRUG INEFFECTIVE [None]
  - STOOL ANALYSIS ABNORMAL [None]
